FAERS Safety Report 18660961 (Version 1)
Quarter: 2020Q4

REPORT INFORMATION
  Report Type: Spontaneous
  Country: GB (occurrence: GB)
  Receive Date: 20201224
  Receipt Date: 20201224
  Transmission Date: 20210114
  Serious: Yes (Other)
  Sender: FDA-Public Use
  Company Number: GB-PFIZER INC-9542

PATIENT
  Sex: Female

DRUGS (4)
  1. DEXAMETHASONE SODIUM PHOSPHATE. [Concomitant]
     Active Substance: DEXAMETHASONE SODIUM PHOSPHATE
     Dosage: UNK
  2. GEMCITABINE. [Suspect]
     Active Substance: GEMCITABINE
     Indication: OVARIAN CANCER
     Dosage: 1000 MG/M2, CYCLIC; ON DAYS 1 AND 8 AT 3-WEEK INTERVALS; FOLLOWED BY FOUR CYCLES
     Route: 051
  3. CARBOPLATIN. [Suspect]
     Active Substance: CARBOPLATIN
     Indication: OVARIAN CANCER
     Dosage: 500 ML, CYCLIC; AT 3-WEEK INTERVALS; FOUR CYCLES
     Route: 051
  4. PACLITAXEL. [Suspect]
     Active Substance: PACLITAXEL
     Indication: OVARIAN CANCER
     Dosage: 70 MG/M2, CYCLIC; ON DAYS 1, 8, AND 15; FOLLOWED BY FOUR CYCLES
     Route: 051

REACTIONS (2)
  - Pulmonary function test abnormal [Unknown]
  - Lung infiltration [Unknown]
